FAERS Safety Report 13094810 (Version 1)
Quarter: 2017Q1

REPORT INFORMATION
  Report Type: Spontaneous
  Country: TR (occurrence: TR)
  Receive Date: 20170106
  Receipt Date: 20170106
  Transmission Date: 20170428
  Serious: Yes (Other)
  Sender: FDA-Public Use
  Company Number: TR-JNJFOC-20170102683

PATIENT
  Sex: Female

DRUGS (1)
  1. DOXORUBICIN HYDROCHLORIDE. [Suspect]
     Active Substance: DOXORUBICIN HYDROCHLORIDE
     Indication: BREAST CANCER
     Dosage: 240 MG/M2 IN 12 WEEKS (DIVIDED TO FOUR EQUAL DOSES WITH 3 WEEK INTERVALS)
     Route: 065

REACTIONS (1)
  - Brain natriuretic peptide increased [Unknown]
